FAERS Safety Report 19444441 (Version 7)
Quarter: 2024Q1

REPORT INFORMATION
  Report Type: Report from Study
  Country: US (occurrence: US)
  Receive Date: 20210621
  Receipt Date: 20240219
  Transmission Date: 20240409
  Serious: Yes (Hospitalization, Other)
  Sender: FDA-Public Use
  Company Number: US-TAKEDA-US202026095

PATIENT
  Age: 72 Year
  Sex: Female

DRUGS (2)
  1. HUMAN IMMUNOGLOBULIN G [Suspect]
     Active Substance: HUMAN IMMUNOGLOBULIN G
     Indication: Primary immunodeficiency syndrome
     Dosage: UNK
     Route: 042
  2. HUMAN IMMUNOGLOBULIN G [Suspect]
     Active Substance: HUMAN IMMUNOGLOBULIN G
     Indication: Immunodeficiency common variable
     Dosage: UNK UNK, Q3WEEKS
     Route: 065

REACTIONS (11)
  - Atypical pneumonia [Unknown]
  - COVID-19 [Unknown]
  - Asthma [Unknown]
  - Plantar fasciitis [Unknown]
  - Upper-airway cough syndrome [Unknown]
  - Dysphonia [Unknown]
  - Sinus disorder [Not Recovered/Not Resolved]
  - Body temperature fluctuation [Unknown]
  - Sciatica [Recovering/Resolving]
  - Food allergy [Unknown]
  - Upper respiratory tract infection [Unknown]

NARRATIVE: CASE EVENT DATE: 20220111
